FAERS Safety Report 11362966 (Version 1)
Quarter: 2015Q3

REPORT INFORMATION
  Report Type: Spontaneous
  Country: US (occurrence: None)
  Receive Date: 20150807
  Receipt Date: 20150807
  Transmission Date: 20151125
  Serious: No
  Sender: FDA-Public Use
  Company Number: None

PATIENT

DRUGS (2)
  1. RISPERDAL [Suspect]
     Active Substance: RISPERIDONE
  2. ZOLOFT [Suspect]
     Active Substance: SERTRALINE HYDROCHLORIDE

REACTIONS (15)
  - Delusion [None]
  - Tongue biting [None]
  - Glossodynia [None]
  - Tinnitus [None]
  - Deafness [None]
  - Dry mouth [None]
  - Emotional disorder [None]
  - Muscle atrophy [None]
  - Somnolence [None]
  - Dystonia [None]
  - Weight decreased [None]
  - Muscle spasms [None]
  - Bruxism [None]
  - Tardive dyskinesia [None]
  - Muscular weakness [None]

NARRATIVE: CASE EVENT DATE: 2011
